FAERS Safety Report 15470905 (Version 2)
Quarter: 2018Q4

REPORT INFORMATION
  Report Type: Spontaneous
  Country: CO (occurrence: CO)
  Receive Date: 20181006
  Receipt Date: 20181126
  Transmission Date: 20190205
  Serious: Yes (Hospitalization, Other)
  Sender: FDA-Public Use
  Company Number: CO-AMGEN-COLSP2018119257

PATIENT
  Age: 47 Year
  Sex: Male
  Weight: 77 kg

DRUGS (2)
  1. ENBREL [Suspect]
     Active Substance: ETANERCEPT
     Indication: RHEUMATOID ARTHRITIS
     Dosage: 50 MG, QWK
     Route: 058
     Dates: start: 201806
  2. ENBREL [Suspect]
     Active Substance: ETANERCEPT
     Dosage: 50 MG, QWK
     Route: 058
     Dates: start: 201807

REACTIONS (4)
  - Ulcer [Unknown]
  - Haematemesis [Unknown]
  - Drug effect incomplete [Unknown]
  - Injection site erythema [Unknown]

NARRATIVE: CASE EVENT DATE: 2018
